FAERS Safety Report 4939720-9 (Version None)
Quarter: 2006Q1

REPORT INFORMATION
  Report Type: 
  Country: None (occurrence: None)
  Receive Date: 20060310
  Receipt Date: 20060216
  Transmission Date: 20060701
  Serious: Yes (Hospitalization)
  Sender: FDA-Public Use
  Company Number: JP-MERCK-0602USA04921

PATIENT
  Age: 79 Year
  Sex: Male
  Weight: 62 kg

DRUGS (8)
  1. ZOCOR [Suspect]
     Indication: HYPERCHOLESTEROLAEMIA
     Route: 048
     Dates: start: 19950627, end: 20060126
  2. ARTANE [Concomitant]
     Indication: PARKINSONISM
     Route: 048
     Dates: start: 19900223, end: 20060126
  3. AMLODIN [Concomitant]
     Indication: HYPERTENSION
     Route: 048
     Dates: start: 19900113
  4. THYRADIN-S [Concomitant]
     Indication: HYPOTHYROIDISM
     Route: 048
     Dates: start: 20020322
  5. LASIX [Concomitant]
     Indication: POLYURIA
     Route: 065
     Dates: start: 20030424
  6. ASPIRIN [Concomitant]
     Indication: CEREBROVASCULAR ACCIDENT PROPHYLAXIS
     Route: 048
     Dates: start: 19900113
  7. DIGOSIN [Concomitant]
     Indication: CARDIAC FAILURE
     Route: 048
     Dates: start: 20030424
  8. RENIVACE [Concomitant]
     Indication: HYPERTENSION
     Route: 048
     Dates: start: 19900113

REACTIONS (4)
  - HYPOTHYROIDISM [None]
  - PYELONEPHRITIS [None]
  - RHABDOMYOLYSIS [None]
  - URINARY TRACT INFECTION [None]
